FAERS Safety Report 10740194 (Version 1)
Quarter: 2015Q1

REPORT INFORMATION
  Report Type: Spontaneous
  Country: GR (occurrence: GR)
  Receive Date: 20150127
  Receipt Date: 20150127
  Transmission Date: 20150721
  Serious: Yes (Death, Hospitalization)
  Sender: FDA-Public Use
  Company Number: GR-ACCORD-028224

PATIENT
  Age: 31 Year
  Sex: Male

DRUGS (1)
  1. MYCOPHENOLIC ACID. [Suspect]
     Active Substance: MYCOPHENOLIC ACID
     Indication: PRODUCT USED FOR UNKNOWN INDICATION
     Dosage: 1 GR/DIE

REACTIONS (4)
  - Acute lung injury [Fatal]
  - Respiratory failure [Unknown]
  - Interstitial lung disease [Unknown]
  - Acute respiratory distress syndrome [Fatal]
